FAERS Safety Report 4838748-7 (Version None)
Quarter: 2005Q4

REPORT INFORMATION
  Report Type: 
  Country: None (occurrence: None)
  Receive Date: 20051129
  Receipt Date: 20050923
  Transmission Date: 20060501
  Serious: No
  Sender: FDA-Public Use
  Company Number: US-GLAXOSMITHKLINE-A0575629A

PATIENT
  Age: 50 Year
  Sex: Female

DRUGS (1)
  1. COMMIT [Suspect]
     Dates: start: 20050920, end: 20050922

REACTIONS (4)
  - ABDOMINAL PAIN [None]
  - BACK PAIN [None]
  - ORAL DISCOMFORT [None]
  - THROAT IRRITATION [None]
